FAERS Safety Report 10879045 (Version 2)
Quarter: 2015Q1

REPORT INFORMATION
  Report Type: Spontaneous
  Country: US (occurrence: None)
  Receive Date: 20150225
  Receipt Date: 20150304
  Transmission Date: 20150721
  Serious: Yes (Hospitalization)
  Sender: FDA-Public Use
  Company Number: 150045

PATIENT
  Age: 71 Year
  Sex: Male
  Weight: 83.92 kg

DRUGS (2)
  1. HYPERTENSION MEDICATION [Concomitant]
     Active Substance: UNSPECIFIED INGREDIENT
  2. PEG-3350, SODIUM CHLORIDE, SODIUM BICARBONATE AND POTASSIUM CHLORIDE [Suspect]
     Active Substance: POLYETHYLENE GLYCOL 3350\POTASSIUM CHLORIDE\SODIUM BICARBONATE\SODIUM CHLORIDE
     Route: 048
     Dates: start: 20150208, end: 20150208

REACTIONS (12)
  - Swollen tongue [None]
  - Blood sodium decreased [None]
  - Coma [None]
  - Agitation [None]
  - Amnesia [None]
  - Decreased appetite [None]
  - Insomnia [None]
  - Dyspepsia [None]
  - Electrolyte depletion [None]
  - Pyrexia [None]
  - Mental status changes [None]
  - Delirium [None]

NARRATIVE: CASE EVENT DATE: 20150209
